FAERS Safety Report 6030331-3 (Version None)
Quarter: 2009Q1

REPORT INFORMATION
  Report Type: 
  Country: None (occurrence: None)
  Receive Date: 20090107
  Receipt Date: 20080728
  Transmission Date: 20090719
  Serious: No
  Sender: FDA-Public Use
  Company Number: US-BAYER-200813209BCC

PATIENT
  Age: 77 Year
  Sex: Female
  Weight: 67 kg

DRUGS (5)
  1. ALEVE (CAPLET) [Suspect]
     Indication: SCIATICA
     Dosage: TOTAL DAILY DOSE: 660 MG  UNIT DOSE: 220 MG
     Route: 048
     Dates: start: 20080721, end: 20080728
  2. ALEVE (CAPLET) [Suspect]
     Dosage: TOTAL DAILY DOSE: 660 MG  UNIT DOSE: 220 MG
     Dates: start: 20080720
  3. SYNTHROID [Concomitant]
  4. ZOCOR [Concomitant]
  5. ATENOLOL [Concomitant]

REACTIONS (1)
  - SCIATICA [None]
